FAERS Safety Report 5757199-4 (Version None)
Quarter: 2008Q2

REPORT INFORMATION
  Report Type: 
  Country: None (occurrence: None)
  Receive Date: 20080529
  Receipt Date: 20080429
  Transmission Date: 20081010
  Serious: Yes (Hospitalization)
  Sender: FDA-Public Use
  Company Number: ADE# 08-056

PATIENT
  Age: 63 Year
  Sex: Female

DRUGS (3)
  1. METOPROLOL TARTRATE TABLET, USP, 25MG [Suspect]
     Dosage: 1/2 TAB., 2XDAILY
     Dates: start: 20080301
  2. PREVACID [Concomitant]
  3. COUMADIN [Concomitant]

REACTIONS (2)
  - BLOOD PRESSURE INCREASED [None]
  - PHARMACEUTICAL PRODUCT COMPLAINT [None]
